FAERS Safety Report 8503549-5 (Version None)
Quarter: 2012Q3

REPORT INFORMATION
  Report Type: 
  Country: None (occurrence: None)
  Receive Date: 20120702
  Receipt Date: 20120615
  Transmission Date: 20120928
  Serious: Yes (Other)
  Sender: FDA-Public Use
  Company Number: 2012MP100277

PATIENT
  Age: 33 Year
  Sex: Male

DRUGS (4)
  1. ADCETRIS [Suspect]
     Indication: HODGKIN'S DISEASE
     Dosage: QCYCLE
  2. IFOSFAMIDE [Suspect]
     Indication: HODGKIN'S DISEASE
     Dosage: QCYCLE
  3. VINORELBINE [Suspect]
     Indication: HODGKIN'S DISEASE
     Dosage: QCYCLE
  4. GEMCITABINE HYDROCHLORIDE [Suspect]
     Indication: HODGKIN'S DISEASE
     Dosage: QCYCLE

REACTIONS (6)
  - SNORING [None]
  - GAIT DISTURBANCE [None]
  - FATIGUE [None]
  - DRUG INEFFECTIVE [None]
  - AMNESIA [None]
  - SOMNOLENCE [None]
